FAERS Safety Report 18823612 (Version 2)
Quarter: 2021Q1

REPORT INFORMATION
  Report Type: Spontaneous
  Country: RU (occurrence: RU)
  Receive Date: 20210202
  Receipt Date: 20210208
  Transmission Date: 20210419
  Serious: Yes (Hospitalization)
  Sender: FDA-Public Use
  Company Number: RU-EMD SERONO-9215405

PATIENT
  Age: 24 Year
  Sex: Female

DRUGS (4)
  1. REBIF [Suspect]
     Active Substance: INTERFERON BETA-1A
     Indication: MULTIPLE SCLEROSIS
     Route: 058
     Dates: start: 202001, end: 20210122
  2. THYROZOL [Suspect]
     Active Substance: METHIMAZOLE
     Indication: HYPERTHYROIDISM
  3. THYROZOL [Suspect]
     Active Substance: METHIMAZOLE
  4. THYROZOL [Suspect]
     Active Substance: METHIMAZOLE

REACTIONS (2)
  - Polyglandular autoimmune syndrome type II [Unknown]
  - Ketoacidosis [Unknown]

NARRATIVE: CASE EVENT DATE: 202007
